FAERS Safety Report 16493392 (Version 1)
Quarter: 2019Q2

REPORT INFORMATION
  Report Type: Spontaneous
  Country: CN (occurrence: CN)
  Receive Date: 20190628
  Receipt Date: 20190628
  Transmission Date: 20190711
  Serious: Yes (Other)
  Sender: FDA-Public Use
  Company Number: CN-JNJFOC-20190628638

PATIENT
  Age: 0 Day
  Sex: Female
  Weight: 2.6 kg

DRUGS (2)
  1. MOTRIN INFANTS [Suspect]
     Active Substance: IBUPROFEN
     Indication: PATENT DUCTUS ARTERIOSUS
     Route: 045
     Dates: start: 20190531, end: 20190531
  2. MOTRIN INFANTS [Suspect]
     Active Substance: IBUPROFEN
     Route: 045
     Dates: start: 20190601, end: 20190601

REACTIONS (4)
  - Off label use [Unknown]
  - Vomiting [Recovering/Resolving]
  - Product use in unapproved indication [Unknown]
  - Gastrointestinal haemorrhage [Recovering/Resolving]

NARRATIVE: CASE EVENT DATE: 20190531
